FAERS Safety Report 24579475 (Version 2)
Quarter: 2025Q4

REPORT INFORMATION
  Report Type: Spontaneous
  Country: US (occurrence: US)
  Receive Date: 20241105
  Receipt Date: 20251001
  Transmission Date: 20260119
  Serious: Yes (Other)
  Sender: CSL BEHRING
  Company Number: US-BEH-2024182609

PATIENT
  Sex: Male

DRUGS (10)
  1. IDELVION [Suspect]
     Active Substance: COAGULATION FACTOR IX RECOMBINANT HUMAN
     Indication: Factor IX deficiency
     Dosage: 5500 IU, PRN
     Route: 042
     Dates: start: 202401
  2. IDELVION [Suspect]
     Active Substance: COAGULATION FACTOR IX RECOMBINANT HUMAN
     Indication: Factor IX deficiency
     Dosage: 5500 IU, PRN
     Route: 042
     Dates: start: 202401
  3. IDELVION [Suspect]
     Active Substance: COAGULATION FACTOR IX RECOMBINANT HUMAN
     Dosage: 5500 IU, QW
     Route: 042
     Dates: start: 202401
  4. IDELVION [Suspect]
     Active Substance: COAGULATION FACTOR IX RECOMBINANT HUMAN
     Dosage: 5500 IU, QW
     Route: 042
     Dates: start: 202401
  5. IDELVION [Suspect]
     Active Substance: COAGULATION FACTOR IX RECOMBINANT HUMAN
     Indication: Factor IX deficiency
     Dosage: 5500 IU, QW
     Route: 042
     Dates: start: 202401
  6. IDELVION [Suspect]
     Active Substance: COAGULATION FACTOR IX RECOMBINANT HUMAN
     Indication: Factor IX deficiency
     Dosage: 5500 IU, QW
     Route: 042
     Dates: start: 202401
  7. IDELVION [Suspect]
     Active Substance: COAGULATION FACTOR IX RECOMBINANT HUMAN
     Dosage: 5500 IU, PRN
     Route: 042
     Dates: start: 202401
  8. IDELVION [Suspect]
     Active Substance: COAGULATION FACTOR IX RECOMBINANT HUMAN
     Dosage: 5500 IU, PRN
     Route: 042
     Dates: start: 202401
  9. DESCOVY [Concomitant]
     Active Substance: EMTRICITABINE\TENOFOVIR ALAFENAMIDE FUMARATE
  10. CELECOXIB [Concomitant]
     Active Substance: CELECOXIB

REACTIONS (3)
  - Haemorrhage [Unknown]
  - Dehydration [Unknown]
  - Poor venous access [Unknown]
